FAERS Safety Report 16884208 (Version 3)
Quarter: 2025Q4

REPORT INFORMATION
  Report Type: Report from Study
  Country: EU (occurrence: EU)
  Receive Date: 20191004
  Receipt Date: 20251108
  Transmission Date: 20260117
  Serious: Yes (Death, Hospitalization, Other)
  Sender: ACCORD
  Company Number: EU-ACCORD-156388

PATIENT
  Age: 16 Year
  Sex: Male

DRUGS (4)
  1. MYCOPHENOLATE MOFETIL [Suspect]
     Active Substance: MYCOPHENOLATE MOFETIL
     Indication: Bone marrow conditioning regimen
  2. PREDNISONE [Suspect]
     Active Substance: PREDNISONE
     Indication: Bone marrow conditioning regimen
  3. PREDNISONE [Suspect]
     Active Substance: PREDNISONE
     Indication: Chronic myeloid leukaemia
  4. MYCOPHENOLATE MOFETIL [Suspect]
     Active Substance: MYCOPHENOLATE MOFETIL
     Indication: Chronic myeloid leukaemia

REACTIONS (3)
  - Cytomegalovirus viraemia [Recovering/Resolving]
  - Bronchopulmonary aspergillosis [Fatal]
  - Cerebral aspergillosis [Fatal]
